FAERS Safety Report 7906915-1 (Version None)
Quarter: 2011Q4

REPORT INFORMATION
  Report Type: 
  Country: None (occurrence: None)
  Receive Date: 20111109
  Receipt Date: 20111109
  Transmission Date: 20120403
  Serious: Yes (Other)
  Sender: FDA-Public Use
  Company Number: None

PATIENT
  Sex: Female

DRUGS (1)
  1. ACTEMRA [Suspect]
     Dosage: 570 MG;MONTHLY;IV
     Route: 042
     Dates: start: 20110907, end: 20111007

REACTIONS (5)
  - GASTROINTESTINAL HAEMORRHAGE [None]
  - HEADACHE [None]
  - INFUSION RELATED REACTION [None]
  - GASTRITIS [None]
  - DRY MOUTH [None]
